FAERS Safety Report 14526847 (Version 1)
Quarter: 2018Q1

REPORT INFORMATION
  Report Type: Spontaneous
  Country: US (occurrence: US)
  Receive Date: 20180212
  Receipt Date: 20180212
  Transmission Date: 20180509
  Serious: No
  Sender: FDA-Public Use
  Company Number: None

PATIENT
  Sex: Male

DRUGS (1)
  1. MESALAMINE DELAYED-RELEASE [Suspect]
     Active Substance: MESALAMINE
     Indication: COLITIS ULCERATIVE
     Dosage: ?          QUANTITY:4 TABLET(S);?
     Route: 048
     Dates: start: 20171011, end: 20171222

REACTIONS (6)
  - Condition aggravated [None]
  - Drug ineffective [None]
  - Frequent bowel movements [None]
  - Fatigue [None]
  - Product substitution issue [None]
  - Abdominal pain [None]

NARRATIVE: CASE EVENT DATE: 20171115
